FAERS Safety Report 5306955-5 (Version None)
Quarter: 2007Q1

REPORT INFORMATION
  Report Type: 
  Country: None (occurrence: None)
  Receive Date: 20070201
  Receipt Date: 20061205
  Transmission Date: 20070707
  Serious: No
  Sender: FDA-Public Use
  Company Number: 2006PV026401

PATIENT
  Age: 58 Year
  Sex: Female
  Weight: 106.5953 kg

DRUGS (5)
  1. BYETTA [Suspect]
     Indication: DIABETES MELLITUS NON-INSULIN-DEPENDENT
     Dosage: 5 MCG;BID;SC
     Route: 058
     Dates: start: 20061014
  2. ZOMETA [Suspect]
     Indication: NEOPLASM MALIGNANT
     Dosage: ;QM;
     Dates: start: 20060927
  3. METFORMIN HCL [Concomitant]
  4. GLYBURIDE [Concomitant]
  5. ARIMIDEX [Concomitant]

REACTIONS (7)
  - ANAEMIA [None]
  - BLOOD GLUCOSE INCREASED [None]
  - BONE PAIN [None]
  - GASTROOESOPHAGEAL REFLUX DISEASE [None]
  - INFLUENZA LIKE ILLNESS [None]
  - MYALGIA [None]
  - RESPIRATORY TRACT CONGESTION [None]
